FAERS Safety Report 9501621 (Version 1)
Quarter: 2013Q3

REPORT INFORMATION
  Report Type: Spontaneous
  Country: US (occurrence: US)
  Receive Date: 20130905
  Receipt Date: 20130905
  Transmission Date: 20140515
  Serious: Yes (Other)
  Sender: FDA-Public Use
  Company Number: US-PERRIGO-13US008984

PATIENT
  Sex: 0

DRUGS (1)
  1. NAPROXEN [Suspect]
     Indication: OSTEOARTHRITIS
     Dosage: 500 MG, BID
     Route: 048

REACTIONS (1)
  - Gastrointestinal haemorrhage [Unknown]
